FAERS Safety Report 25892151 (Version 1)
Quarter: 2025Q4

REPORT INFORMATION
  Report Type: Spontaneous
  Country: US (occurrence: US)
  Receive Date: 20251007
  Receipt Date: 20251007
  Transmission Date: 20260117
  Serious: Yes (Death, Other)
  Sender: ABBVIE
  Company Number: US-ABBVIE-6491791

PATIENT
  Age: 64 Year
  Sex: Male
  Weight: 36.287 kg

DRUGS (1)
  1. CREON [Suspect]
     Active Substance: PANCRELIPASE AMYLASE\PANCRELIPASE LIPASE\PANCRELIPASE PROTEASE
     Indication: Pancreatic failure
     Dosage: 24000 UNIT.?3 CAPS EVERY MEAL AND 1 CAP EVERY MEALS
     Route: 048
     Dates: start: 202307

REACTIONS (2)
  - Pancreatic carcinoma metastatic [Fatal]
  - Sepsis [Not Recovered/Not Resolved]

NARRATIVE: CASE EVENT DATE: 20240801
